FAERS Safety Report 7012323-0 (Version None)
Quarter: 2010Q3

REPORT INFORMATION
  Report Type: 
  Country: None (occurrence: None)
  Receive Date: 20100910
  Receipt Date: 20091210
  Transmission Date: 20110219
  Serious: Yes (Other)
  Sender: FDA-Public Use
  Company Number: 1000009087

PATIENT
  Age: 67 Year
  Sex: Female
  Weight: 75.7507 kg

DRUGS (8)
  1. CELEXA [Suspect]
     Indication: ANXIETY
     Dosage: 20 MG (20 MG, 1 IN 1D),ORAL; 20 MG, ORAL
     Route: 048
     Dates: start: 19990726, end: 20090820
  2. CELEXA [Suspect]
     Indication: ANXIETY
     Dosage: 20 MG (20 MG, 1 IN 1D),ORAL; 20 MG, ORAL
     Route: 048
     Dates: start: 20090825
  3. SAVELLA [Suspect]
     Indication: FIBROMYALGIA
     Dosage: 12.5 MG (12.5 MG, 1 IN 1 D)ORAL
     Route: 048
     Dates: start: 20090821, end: 20090821
  4. SAVELLA [Suspect]
     Indication: FIBROMYALGIA
     Dosage: 50 MG (25 MG,2 IN 1 D),ORAL
     Route: 048
     Dates: start: 20090824, end: 20090824
  5. PROTONIX (40 MILLIGRAM, TABLETS) [Concomitant]
  6. CALCIUM/VITAMIN D (TABLETS) [Concomitant]
  7. FISH OIL [Concomitant]
  8. ARIMIDEX [Concomitant]

REACTIONS (6)
  - ATRIAL TACHYCARDIA [None]
  - DIZZINESS [None]
  - DYSPNOEA [None]
  - FEELING COLD [None]
  - HEART RATE INCREASED [None]
  - HOT FLUSH [None]
